FAERS Safety Report 7296628-4 (Version None)
Quarter: 2011Q1

REPORT INFORMATION
  Report Type: 
  Country: None (occurrence: None)
  Receive Date: 20110216
  Receipt Date: 20110210
  Transmission Date: 20110831
  Serious: Yes (Life-Threatening, Hospitalization, Other)
  Sender: FDA-Public Use
  Company Number: PHHY2009CH15406

PATIENT
  Age: 51 Year
  Sex: Male

DRUGS (5)
  1. METFORMIN [Concomitant]
     Dosage: UNK
  2. PANTOPRAZOLE [Concomitant]
     Dosage: 40 MG, UNK
  3. NICORETTE TTS [Concomitant]
     Dosage: 01 DF, UNK
     Route: 065
  4. ZYPREXA [Concomitant]
     Indication: SCHIZOPHRENIA
     Dosage: 10 MG
     Dates: start: 20090403
  5. LEPONEX [Suspect]
     Indication: SCHIZOPHRENIA, PARANOID TYPE
     Dosage: 01 DF, UNK
     Dates: start: 20081201, end: 20090327

REACTIONS (8)
  - NEUTROPENIA [None]
  - PYREXIA [None]
  - AGRANULOCYTOSIS [None]
  - ASTHENIA [None]
  - HEADACHE [None]
  - DIABETES MELLITUS [None]
  - WHITE BLOOD CELL COUNT DECREASED [None]
  - PRODUCTIVE COUGH [None]
